FAERS Safety Report 5580516-5 (Version None)
Quarter: 2008Q1

REPORT INFORMATION
  Report Type: 
  Country: None (occurrence: None)
  Receive Date: 20080103
  Receipt Date: 20071227
  Transmission Date: 20080703
  Serious: Yes (Hospitalization, Other)
  Sender: FDA-Public Use
  Company Number: US-ELI_LILLY_AND_COMPANY-US200712004985

PATIENT
  Sex: Female

DRUGS (6)
  1. HUMALOG [Suspect]
     Indication: DIABETES MELLITUS
     Dosage: SLIDING SCALE BEFORE MEALS
  2. HUMULIN N [Suspect]
     Indication: DIABETES MELLITUS
     Dosage: 55 U, EACH MORNING
  3. HUMULIN N [Suspect]
     Dosage: 45 U, EACH EVENING
  4. HUMULIN N [Suspect]
  5. PHENERGAN HCL [Concomitant]
  6. ANTIBIOTICS [Concomitant]
     Dates: start: 20070101

REACTIONS (4)
  - ASPIRATION [None]
  - LOCALISED INFECTION [None]
  - LUNG LOBECTOMY [None]
  - VOMITING [None]
